FAERS Safety Report 4822125-9 (Version None)
Quarter: 2005Q4

REPORT INFORMATION
  Report Type: 
  Country: None (occurrence: None)
  Receive Date: 20051103
  Receipt Date: 20051017
  Transmission Date: 20060501
  Serious: Yes (Disabling, Other)
  Sender: FDA-Public Use
  Company Number: DE_050616197

PATIENT
  Age: 53 Year
  Sex: Female
  Weight: 69 kg

DRUGS (5)
  1. GEMZAR [Suspect]
     Indication: URETHRAL CANCER METASTATIC
     Dosage: 1000 MG/M2
     Route: 042
     Dates: start: 20050101, end: 20050501
  2. CARBOPLATIN [Concomitant]
  3. MORPHINE [Concomitant]
  4. DURAGESIC-100 [Concomitant]
  5. EPOGEN [Concomitant]

REACTIONS (12)
  - ANAEMIA [None]
  - BENIGN INTRACRANIAL HYPERTENSION [None]
  - CEREBROVASCULAR ACCIDENT [None]
  - DRUG INTERACTION [None]
  - DRUG TOXICITY [None]
  - EYE HAEMORRHAGE [None]
  - HEMIANOPIA [None]
  - MALIGNANT NEOPLASM PROGRESSION [None]
  - NEOPLASM PROGRESSION [None]
  - PANCYTOPENIA [None]
  - PAPILLOEDEMA [None]
  - THROMBOSIS [None]
